FAERS Safety Report 19403392 (Version 8)
Quarter: 2021Q3

REPORT INFORMATION
  Report Type: Report from Study
  Country: CN (occurrence: CN)
  Receive Date: 20210610
  Receipt Date: 20210818
  Transmission Date: 20211014
  Serious: Yes (Hospitalization)
  Sender: FDA-Public Use
  Company Number: CN-ROCHE-2844538

PATIENT
  Age: 61 Year
  Sex: Male
  Weight: 60 kg

DRUGS (37)
  1. TIRAGOLUMAB. [Suspect]
     Active Substance: TIRAGOLUMAB
     Indication: SMALL CELL LUNG CANCER EXTENSIVE STAGE
     Dosage: MOST RECENT DOSE OF BLINDED TIRAGOLUMAB WAS ADMINISTERED ON 11/MAY/2021 (600 MG) PRIOR TO AE/SAE
     Route: 042
     Dates: start: 20210420
  2. EMEND [Concomitant]
     Active Substance: APREPITANT
     Dates: start: 20210511, end: 20210702
  3. METOCLOPRAMIDE HYDROCHLORIDE. [Concomitant]
     Active Substance: METOCLOPRAMIDE HYDROCHLORIDE
     Dates: start: 20210513, end: 20210513
  4. ONDANSETRON HYDROCHLORIDE. [Concomitant]
     Active Substance: ONDANSETRON HYDROCHLORIDE
     Dates: start: 20210514, end: 20210519
  5. VITAMIN B6 [Concomitant]
     Active Substance: PYRIDOXINE HYDROCHLORIDE
     Dates: start: 20210603, end: 20210603
  6. HIRUDOID [Concomitant]
     Active Substance: GLYCOSAMINOGLYCANS
     Dates: start: 20210701, end: 20210707
  7. PROMETHAZINE HYDROCHLORIDE. [Concomitant]
     Active Substance: PROMETHAZINE HYDROCHLORIDE
     Dates: start: 20210606, end: 20210606
  8. LORATADINE. [Concomitant]
     Active Substance: LORATADINE
     Dates: start: 20210630, end: 20210706
  9. RECOMBINANT HUMAN ERYTHROPOIETIN [Concomitant]
     Active Substance: ERYTHROPOIETIN
     Indication: ANAEMIA
     Dates: start: 20210719, end: 20210719
  10. JILIFEN [Concomitant]
     Active Substance: FILGRASTIM
     Dates: start: 20210506, end: 20210508
  11. POTASSIUM CHLORIDE. [Concomitant]
     Active Substance: POTASSIUM CHLORIDE
     Dates: start: 20210511, end: 20210513
  12. STRUCTOLIPID [Concomitant]
     Active Substance: EGG PHOSPHOLIPIDS\GLYCERIN\SOYBEAN OIL
     Dates: start: 20210511, end: 20210513
  13. LEUCOGEN TABLETS [Concomitant]
     Dates: start: 20210713
  14. ATEZOLIZUMAB. [Suspect]
     Active Substance: ATEZOLIZUMAB
     Indication: SMALL CELL LUNG CANCER EXTENSIVE STAGE
     Dosage: ON 11/MAY/2021, HE RECEIVED MOST RECENT DOSE OF ATEZOLIZUMAB (1200 MG) PRIOR TO AE AND SAE ONSET
     Route: 042
     Dates: start: 20210420
  15. CARBOPLATIN. [Suspect]
     Active Substance: CARBOPLATIN
     Indication: SMALL CELL LUNG CANCER EXTENSIVE STAGE
     Dosage: ON 11/MAY/2021, HE RECEIVED MOST RECENT DOSE OF CARBOPLATIN (422 MG) PRIOR TO AE AND SAE ONSET
     Route: 042
     Dates: start: 20210420
  16. JILIFEN [Concomitant]
     Active Substance: FILGRASTIM
     Dates: start: 20210719, end: 20210719
  17. ONDANSETRON HYDROCHLORIDE. [Concomitant]
     Active Substance: ONDANSETRON HYDROCHLORIDE
     Dates: start: 20210604, end: 20210606
  18. LOW MOLECULAR WEIGHT HEPARIN [Concomitant]
     Active Substance: UNSPECIFIED INGREDIENT
     Dates: start: 20210601, end: 20210719
  19. PANTOPRAZOLE SODIUM. [Concomitant]
     Active Substance: PANTOPRAZOLE SODIUM
     Dates: start: 20210629, end: 20210702
  20. RIVAROXABAN [Concomitant]
     Active Substance: RIVAROXABAN
     Dates: start: 20210720
  21. MEGESTROL ACETATE. [Concomitant]
     Active Substance: MEGESTROL ACETATE
     Route: 048
     Dates: start: 20210421
  22. METOCLOPRAMIDE HYDROCHLORIDE. [Concomitant]
     Active Substance: METOCLOPRAMIDE HYDROCHLORIDE
     Dates: start: 20210701, end: 20210701
  23. ONDANSETRON HYDROCHLORIDE. [Concomitant]
     Active Substance: ONDANSETRON HYDROCHLORIDE
     Dates: start: 20210608, end: 20210613
  24. ONDANSETRON HYDROCHLORIDE. [Concomitant]
     Active Substance: ONDANSETRON HYDROCHLORIDE
     Dates: start: 20210630, end: 20210702
  25. POTASSIUM CHLORIDE. [Concomitant]
     Active Substance: POTASSIUM CHLORIDE
     Dates: start: 20210603, end: 20210607
  26. JILIFEN [Concomitant]
     Active Substance: FILGRASTIM
     Dates: start: 20210625, end: 20210626
  27. LANSOPRAZOLE. [Concomitant]
     Active Substance: LANSOPRAZOLE
     Dates: start: 20210511, end: 20210513
  28. METOCLOPRAMIDE HYDROCHLORIDE. [Concomitant]
     Active Substance: METOCLOPRAMIDE HYDROCHLORIDE
     Dates: start: 20210606, end: 20210606
  29. VITAMIN C [Concomitant]
     Active Substance: ASCORBIC ACID
     Dates: start: 20210603, end: 20210603
  30. VITAMIN B6 [Concomitant]
     Active Substance: PYRIDOXINE HYDROCHLORIDE
     Dates: start: 20210628, end: 20210702
  31. ETOPOSIDE. [Suspect]
     Active Substance: ETOPOSIDE
     Indication: SMALL CELL LUNG CANCER EXTENSIVE STAGE
     Dosage: ON 13/MAY/2021, HE RECEIVED MOST RECENT DOSE OF ETOPOSIDE (169 MG) PRIOR TO AE AND SAE ONSET
     Route: 042
     Dates: start: 20210420
  32. ONDANSETRON HYDROCHLORIDE. [Concomitant]
     Active Substance: ONDANSETRON HYDROCHLORIDE
     Dates: start: 20210703, end: 20210704
  33. POTASSIUM CHLORIDE. [Concomitant]
     Active Substance: POTASSIUM CHLORIDE
     Dates: start: 20210628, end: 20210702
  34. PANTOPRAZOLE SODIUM. [Concomitant]
     Active Substance: PANTOPRAZOLE SODIUM
     Dates: start: 20210604, end: 20210606
  35. VITAMIN C [Concomitant]
     Active Substance: ASCORBIC ACID
     Dates: start: 20210628, end: 20210702
  36. COMPOUND AMINO ACID (18AA?II) [Concomitant]
     Active Substance: AMINO ACIDS
     Dates: start: 20210603, end: 20210603
  37. TORASEMIDE [Concomitant]
     Active Substance: TORSEMIDE
     Dates: start: 20210702, end: 20210702

REACTIONS (2)
  - Vena cava thrombosis [Not Recovered/Not Resolved]
  - Pelvic venous thrombosis [Not Recovered/Not Resolved]

NARRATIVE: CASE EVENT DATE: 20210601
